FAERS Safety Report 4421453-9 (Version None)
Quarter: 2004Q3

REPORT INFORMATION
  Report Type: 
  Country: None (occurrence: None)
  Receive Date: 20040712
  Receipt Date: 20040402
  Transmission Date: 20050211
  Serious: No
  Sender: FDA-Public Use
  Company Number: 2003-11-1795

PATIENT
  Age: 13 Year
  Sex: Female
  Weight: 45.3597 kg

DRUGS (1)
  1. CLARINEX [Suspect]
     Dosage: ORAL
     Route: 048
     Dates: start: 20031001, end: 20031101

REACTIONS (1)
  - BREAST CYST [None]
